FAERS Safety Report 8337315-0 (Version None)
Quarter: 2012Q2

REPORT INFORMATION
  Report Type: 
  Country: None (occurrence: None)
  Receive Date: 20120504
  Receipt Date: 20120427
  Transmission Date: 20120825
  Serious: Yes (Death)
  Sender: FDA-Public Use
  Company Number: US-ROCHE-1064009

PATIENT
  Age: 81 Year

DRUGS (1)
  1. HERCEPTIN [Suspect]
     Indication: METASTATIC GASTRIC CANCER

REACTIONS (1)
  - DEATH [None]
